FAERS Safety Report 6897873-X (Version None)
Quarter: 2010Q3

REPORT INFORMATION
  Report Type: 
  Country: None (occurrence: None)
  Receive Date: 20100802
  Receipt Date: 20070730
  Transmission Date: 20110219
  Serious: No
  Sender: FDA-Public Use
  Company Number: US-PFIZER INC-2007035129

PATIENT
  Sex: Male
  Weight: 89.4 kg

DRUGS (4)
  1. LYRICA [Suspect]
     Indication: ARTHRALGIA
     Dates: start: 20070424
  2. CYMBALTA [Concomitant]
  3. METHADONE HCL [Concomitant]
  4. VITAMINS [Concomitant]

REACTIONS (6)
  - BALANCE DISORDER [None]
  - CONFUSIONAL STATE [None]
  - DISTURBANCE IN ATTENTION [None]
  - DIZZINESS [None]
  - SOMNOLENCE [None]
  - VISION BLURRED [None]
